FAERS Safety Report 8036602-3 (Version None)
Quarter: 2012Q1

REPORT INFORMATION
  Report Type: 
  Country: None (occurrence: None)
  Receive Date: 20120111
  Receipt Date: 20120109
  Transmission Date: 20120608
  Serious: Yes (Hospitalization)
  Sender: FDA-Public Use
  Company Number: US-ABBOTT-11P-163-0858274-00

PATIENT
  Age: 49 Year
  Sex: Female

DRUGS (11)
  1. ZANTAC [Concomitant]
     Indication: PRODUCT USED FOR UNKNOWN INDICATION
     Dosage: 300 MG DAILY
  2. VISTARIL [Concomitant]
     Indication: PRODUCT USED FOR UNKNOWN INDICATION
  3. LEVOTHYROXINE SODIUM [Concomitant]
     Indication: PRODUCT USED FOR UNKNOWN INDICATION
     Dosage: 75 MG DAILY
  4. MS CONTIN [Concomitant]
     Indication: PRODUCT USED FOR UNKNOWN INDICATION
     Dosage: 15MG TWICE A DAY AND 30MG AT BEDTIME
  5. SOMA [Concomitant]
     Indication: PRODUCT USED FOR UNKNOWN INDICATION
     Dosage: 350 MG DAILY
  6. HUMIRA [Suspect]
     Indication: PSORIASIS
     Route: 058
     Dates: start: 20100901
  7. HUMIRA [Suspect]
     Route: 050
     Dates: start: 20110201, end: 20110901
  8. MS CONTIN [Concomitant]
     Dosage: AT BEDTIME
  9. CLONAZEPAM [Concomitant]
     Indication: PRODUCT USED FOR UNKNOWN INDICATION
     Dosage: 2 MG DAILY
  10. PROZAC [Concomitant]
     Indication: PRODUCT USED FOR UNKNOWN INDICATION
     Dosage: 40 MG DAILY
  11. LORAZEPAM [Concomitant]
     Indication: PRODUCT USED FOR UNKNOWN INDICATION

REACTIONS (13)
  - PALPITATIONS [None]
  - ANXIETY [None]
  - DEHYDRATION [None]
  - HYPERSENSITIVITY [None]
  - PAIN IN EXTREMITY [None]
  - DYSPNOEA [None]
  - NAUSEA [None]
  - FATIGUE [None]
  - NECK PAIN [None]
  - HYPERHIDROSIS [None]
  - BRADYCARDIA [None]
  - DIARRHOEA [None]
  - HEADACHE [None]
